FAERS Safety Report 8876125 (Version 1)
Quarter: 2012Q4

REPORT INFORMATION
  Report Type: 
  Country: US (occurrence: US)
  Receive Date: 20121023
  Receipt Date: 20121023
  Transmission Date: 20130627
  Serious: Yes (Other)
  Sender: FDA-Public Use
  Company Number: US-ROCHE-1104358

PATIENT
  Sex: Female

DRUGS (107)
  1. HERCEPTIN [Suspect]
     Indication: BREAST CANCER FEMALE
     Route: 042
     Dates: start: 19951214
  2. HERCEPTIN [Suspect]
     Route: 042
     Dates: start: 20000307
  3. HERCEPTIN [Suspect]
     Route: 042
     Dates: start: 20000314
  4. HERCEPTIN [Suspect]
     Route: 042
     Dates: start: 20000321
  5. HERCEPTIN [Suspect]
     Route: 042
     Dates: start: 20000328
  6. HERCEPTIN [Suspect]
     Route: 042
     Dates: start: 20000404
  7. HERCEPTIN [Suspect]
     Route: 042
     Dates: start: 20000411
  8. HERCEPTIN [Suspect]
     Route: 042
     Dates: start: 20000418
  9. HERCEPTIN [Suspect]
     Route: 042
     Dates: start: 20000425
  10. HERCEPTIN [Suspect]
     Route: 042
     Dates: start: 20000502
  11. HERCEPTIN [Suspect]
     Route: 042
     Dates: start: 20000509
  12. HERCEPTIN [Suspect]
     Route: 042
     Dates: start: 20000517
  13. HERCEPTIN [Suspect]
     Route: 042
     Dates: start: 20000523
  14. HERCEPTIN [Suspect]
     Route: 042
     Dates: start: 20000530
  15. HERCEPTIN [Suspect]
     Route: 042
     Dates: start: 20000605
  16. HERCEPTIN [Suspect]
     Route: 042
     Dates: start: 20000613
  17. HERCEPTIN [Suspect]
     Route: 042
     Dates: start: 20000620
  18. HERCEPTIN [Suspect]
     Route: 042
     Dates: start: 20000627
  19. HERCEPTIN [Suspect]
     Route: 042
     Dates: start: 20000703
  20. HERCEPTIN [Suspect]
     Route: 042
     Dates: start: 20000710
  21. HERCEPTIN [Suspect]
     Route: 042
     Dates: start: 20000717
  22. HERCEPTIN [Suspect]
     Route: 042
     Dates: start: 20000724
  23. HERCEPTIN [Suspect]
     Route: 042
     Dates: start: 20000731
  24. HERCEPTIN [Suspect]
     Route: 042
     Dates: start: 20000927
  25. HERCEPTIN [Suspect]
     Route: 042
     Dates: start: 20001003
  26. HERCEPTIN [Suspect]
     Route: 042
     Dates: start: 20001017
  27. XELODA [Suspect]
     Indication: BREAST CANCER
     Route: 065
     Dates: end: 19991215
  28. ATIVAN [Concomitant]
     Route: 065
  29. CISPLATIN [Concomitant]
  30. TAXOTERE [Concomitant]
  31. NAVELBINE [Concomitant]
     Route: 042
     Dates: start: 20000303
  32. NAVELBINE [Concomitant]
     Route: 042
     Dates: start: 20000321
  33. NAVELBINE [Concomitant]
     Route: 042
     Dates: start: 20000328
  34. NAVELBINE [Concomitant]
     Route: 042
     Dates: start: 20000404
  35. NAVELBINE [Concomitant]
     Route: 042
     Dates: start: 20000418
  36. NAVELBINE [Concomitant]
     Route: 042
     Dates: start: 20000425
  37. NAVELBINE [Concomitant]
     Route: 042
     Dates: start: 20000502
  38. NAVELBINE [Concomitant]
     Route: 042
     Dates: start: 20000517
  39. NAVELBINE [Concomitant]
     Route: 042
     Dates: start: 20000523
  40. NAVELBINE [Concomitant]
     Route: 042
     Dates: start: 20000530
  41. NAVELBINE [Concomitant]
     Route: 042
     Dates: start: 20000613
  42. NAVELBINE [Concomitant]
     Route: 042
     Dates: start: 20000620
  43. NAVELBINE [Concomitant]
     Route: 042
     Dates: start: 20000627
  44. AMPICILLIN [Concomitant]
  45. LASIX [Concomitant]
  46. KYTRIL [Concomitant]
     Route: 065
     Dates: start: 20000307
  47. KYTRIL [Concomitant]
     Route: 065
     Dates: start: 20000321
  48. KYTRIL [Concomitant]
     Route: 065
     Dates: start: 20000328
  49. KYTRIL [Concomitant]
     Route: 065
     Dates: start: 20000404
  50. KYTRIL [Concomitant]
     Route: 065
     Dates: start: 20000418
  51. KYTRIL [Concomitant]
     Route: 065
     Dates: start: 20000425
  52. KYTRIL [Concomitant]
     Route: 065
     Dates: start: 20000502
  53. KYTRIL [Concomitant]
     Route: 065
     Dates: start: 20000517
  54. KYTRIL [Concomitant]
     Route: 065
     Dates: start: 20000523
  55. KYTRIL [Concomitant]
     Route: 065
     Dates: start: 20000530
  56. KYTRIL [Concomitant]
     Route: 065
     Dates: start: 20000613
  57. KYTRIL [Concomitant]
     Route: 065
     Dates: start: 20000620
  58. KYTRIL [Concomitant]
     Route: 065
     Dates: start: 20000627
  59. KYTRIL [Concomitant]
     Route: 065
     Dates: start: 20001030
  60. KYTRIL [Concomitant]
     Route: 065
     Dates: start: 20001106
  61. KYTRIL [Concomitant]
     Route: 065
     Dates: start: 20001113
  62. KYTRIL [Concomitant]
     Route: 065
     Dates: start: 20001128
  63. KYTRIL [Concomitant]
     Route: 065
     Dates: start: 20001204
  64. KYTRIL [Concomitant]
     Route: 065
     Dates: start: 20001211
  65. KYTRIL [Concomitant]
     Route: 065
     Dates: start: 20001226
  66. KYTRIL [Concomitant]
     Route: 065
     Dates: start: 20010102
  67. KYTRIL [Concomitant]
     Route: 065
     Dates: start: 20010108
  68. KYTRIL [Concomitant]
     Route: 065
     Dates: start: 20010122
  69. KYTRIL [Concomitant]
     Route: 065
     Dates: start: 20010129
  70. KYTRIL [Concomitant]
     Route: 065
     Dates: start: 20010205
  71. DECADRON [Concomitant]
     Route: 065
     Dates: start: 20000307
  72. DECADRON [Concomitant]
     Route: 065
     Dates: start: 20000321
  73. DECADRON [Concomitant]
     Route: 065
     Dates: start: 20000328
  74. DECADRON [Concomitant]
     Route: 065
     Dates: start: 20000404
  75. DECADRON [Concomitant]
     Route: 065
     Dates: start: 20000418
  76. DECADRON [Concomitant]
     Route: 065
     Dates: start: 20000425
  77. DECADRON [Concomitant]
     Route: 065
     Dates: start: 20000502
  78. DECADRON [Concomitant]
     Route: 065
     Dates: start: 20000517
  79. DECADRON [Concomitant]
     Route: 065
     Dates: start: 20000523
  80. DECADRON [Concomitant]
     Route: 065
     Dates: start: 20000530
  81. DECADRON [Concomitant]
     Route: 065
     Dates: start: 20000613
  82. DECADRON [Concomitant]
     Route: 065
     Dates: start: 20000620
  83. DECADRON [Concomitant]
     Route: 065
     Dates: start: 20000627
  84. DECADRON [Concomitant]
     Route: 065
     Dates: start: 20001030
  85. DECADRON [Concomitant]
     Route: 065
     Dates: start: 20001106
  86. DECADRON [Concomitant]
     Route: 065
     Dates: start: 20001113
  87. DECADRON [Concomitant]
     Route: 065
     Dates: start: 20001128
  88. DECADRON [Concomitant]
     Route: 065
     Dates: start: 20001204
  89. DECADRON [Concomitant]
     Route: 065
     Dates: start: 20001211
  90. DECADRON [Concomitant]
     Route: 065
     Dates: start: 20001226
  91. DECADRON [Concomitant]
     Route: 065
     Dates: start: 20010102
  92. DECADRON [Concomitant]
     Route: 065
     Dates: start: 20010108
  93. DECADRON [Concomitant]
     Route: 065
     Dates: start: 20010122
  94. DECADRON [Concomitant]
     Route: 065
     Dates: start: 20010129
  95. DECADRON [Concomitant]
     Route: 065
     Dates: start: 20010205
  96. GEMZAR [Concomitant]
     Route: 065
     Dates: start: 20001030
  97. GEMZAR [Concomitant]
     Route: 065
     Dates: start: 20001106
  98. GEMZAR [Concomitant]
     Route: 065
     Dates: start: 20001113
  99. GEMZAR [Concomitant]
     Route: 065
     Dates: start: 20001128
  100. GEMZAR [Concomitant]
     Route: 065
     Dates: start: 20001204
  101. GEMZAR [Concomitant]
     Route: 065
     Dates: start: 20001211
  102. GEMZAR [Concomitant]
     Route: 065
     Dates: start: 20001226
  103. GEMZAR [Concomitant]
     Route: 065
     Dates: start: 20010102
  104. GEMZAR [Concomitant]
     Route: 065
     Dates: start: 20010108
  105. GEMZAR [Concomitant]
     Route: 065
     Dates: start: 20010122
  106. GEMZAR [Concomitant]
     Route: 065
     Dates: start: 20010129
  107. GEMZAR [Concomitant]
     Route: 065
     Dates: start: 20010213

REACTIONS (10)
  - Disease progression [Unknown]
  - Upper respiratory tract infection [Unknown]
  - Thrombosis [Unknown]
  - Nausea [Recovered/Resolved]
  - Vomiting [Recovered/Resolved]
  - Asthenia [Recovered/Resolved]
  - Dizziness [Recovered/Resolved]
  - Neuropathy peripheral [Unknown]
  - Insomnia [Unknown]
  - Musculoskeletal pain [Unknown]
